FAERS Safety Report 10269025 (Version 1)
Quarter: 2014Q2

REPORT INFORMATION
  Report Type: Spontaneous
  Country: US (occurrence: US)
  Receive Date: 20140630
  Receipt Date: 20140630
  Transmission Date: 20141212
  Serious: Yes (Death, Other)
  Sender: FDA-Public Use
  Company Number: US-TAKEDA-2014MPI001801

PATIENT
  Age: 62 Year
  Sex: Male

DRUGS (2)
  1. VELCADE [Suspect]
     Indication: PLASMA CELL MYELOMA
     Dosage: UNK
     Route: 042
  2. DEXAMETHASONE [Suspect]
     Indication: PLASMA CELL MYELOMA
     Route: 065

REACTIONS (5)
  - Congestive cardiomyopathy [Unknown]
  - Neutropenic sepsis [Fatal]
  - Renal failure acute [Unknown]
  - Liver function test abnormal [Unknown]
  - Thrombocytopenia [Unknown]
